FAERS Safety Report 10904203 (Version 1)
Quarter: 2015Q1

REPORT INFORMATION
  Report Type: Spontaneous
  Country: US (occurrence: None)
  Receive Date: 20150304
  Receipt Date: 20150304
  Transmission Date: 20150721
  Serious: No
  Sender: FDA-Public Use
  Company Number: None

PATIENT
  Age: 42 Year
  Sex: Female

DRUGS (1)
  1. VIVITROL [Suspect]
     Active Substance: NALTREXONE
     Dosage: EVERY 4 WEEKS
     Route: 030
     Dates: start: 201406, end: 201501

REACTIONS (3)
  - Injection site mass [None]
  - Injection site swelling [None]
  - Rash [None]

NARRATIVE: CASE EVENT DATE: 20150120
